FAERS Safety Report 7177373-2 (Version None)
Quarter: 2010Q4

REPORT INFORMATION
  Report Type: 
  Country: None (occurrence: None)
  Receive Date: 20101220
  Receipt Date: 20101207
  Transmission Date: 20110411
  Serious: Yes (Hospitalization)
  Sender: FDA-Public Use
  Company Number: PHHY2010IN83123

PATIENT
  Age: 62 Year
  Sex: Female

DRUGS (3)
  1. ZOMETA [Suspect]
     Indication: METASTASES TO BONE
     Dosage: 4MG MONTHLY
     Route: 042
  2. RADIATION THERAPY [Concomitant]
     Indication: BREAST CANCER
  3. CHEMOTHERAPEUTICS [Concomitant]

REACTIONS (2)
  - FEMUR FRACTURE [None]
  - LIMB OPERATION [None]
